FAERS Safety Report 10047369 (Version 1)
Quarter: 2014Q1

REPORT INFORMATION
  Report Type: Spontaneous
  Country: US (occurrence: US)
  Receive Date: 20140331
  Receipt Date: 20140331
  Transmission Date: 20141002
  Serious: No
  Sender: FDA-Public Use
  Company Number: US-JNJFOC-20140312632

PATIENT
  Age: 57 Year
  Sex: Male
  Weight: 88.91 kg

DRUGS (4)
  1. SANDOZ FENTANYL TRANSDERMAL SYSTEM [Suspect]
     Indication: PAIN IN EXTREMITY
     Route: 062
     Dates: start: 201312
  2. CITALOPRAM HBR [Concomitant]
     Indication: ANTIDEPRESSANT THERAPY
     Route: 048
     Dates: start: 2013
  3. NUVIGIL [Concomitant]
     Indication: HYPERVIGILANCE
     Route: 048
     Dates: start: 201401
  4. OXYCODONE [Concomitant]
     Indication: BREAKTHROUGH PAIN
     Route: 065
     Dates: start: 201312

REACTIONS (4)
  - Drug ineffective [Unknown]
  - Poor quality drug administered [Unknown]
  - Product quality issue [Unknown]
  - Product adhesion issue [Unknown]
